FAERS Safety Report 21945995 (Version 1)
Quarter: 2023Q1

REPORT INFORMATION
  Report Type: Spontaneous
  Country: US (occurrence: US)
  Receive Date: 20230202
  Receipt Date: 20230202
  Transmission Date: 20230418
  Serious: No
  Sender: FDA-Public Use
  Company Number: US-SA-SAC20230131001652

PATIENT
  Sex: Male
  Weight: 106 kg

DRUGS (8)
  1. DUPIXENT [Suspect]
     Active Substance: DUPILUMAB
     Indication: Psoriasis
     Dosage: 300 MG, QOW
     Route: 058
     Dates: start: 202001
  2. ALBUTEROL SULFATE [Concomitant]
     Active Substance: ALBUTEROL SULFATE
  3. INSULIN ASPART [Concomitant]
     Active Substance: INSULIN ASPART
  4. VITAMIN B12 [Concomitant]
     Active Substance: CYANOCOBALAMIN
  5. VITAMIN D3 [Concomitant]
     Active Substance: CHOLECALCIFEROL
  6. ATORVASTATIN CALCIUM [Concomitant]
     Active Substance: ATORVASTATIN CALCIUM
  7. SYMBICORT [Concomitant]
     Active Substance: BUDESONIDE\FORMOTEROL FUMARATE DIHYDRATE
  8. MONTELUKAST SODIUM [Concomitant]
     Active Substance: MONTELUKAST SODIUM

REACTIONS (3)
  - Asthma [Unknown]
  - Immune system disorder [Unknown]
  - Product used for unknown indication [Unknown]

NARRATIVE: CASE EVENT DATE: 20200101
